FAERS Safety Report 18276660 (Version 1)
Quarter: 2020Q3

REPORT INFORMATION
  Report Type: Spontaneous
  Country: CA (occurrence: CA)
  Receive Date: 20200917
  Receipt Date: 20200917
  Transmission Date: 20201103
  Serious: Yes (Hospitalization)
  Sender: FDA-Public Use
  Company Number: CA-ROCHE-2676133

PATIENT
  Age: 70 Year
  Sex: Female

DRUGS (4)
  1. RITUXIMAB. [Suspect]
     Active Substance: RITUXIMAB
     Indication: LYMPHOMA
     Route: 042
  2. DOXORUBICIN HYDROCHLORIDE. [Suspect]
     Active Substance: DOXORUBICIN HYDROCHLORIDE
     Indication: LYMPHOMA
     Route: 042
  3. VINCRISTINE SULFATE. [Suspect]
     Active Substance: VINCRISTINE SULFATE
     Indication: LYMPHOMA
     Route: 042
  4. CYCLOPHOSPHAMIDE. [Suspect]
     Active Substance: CYCLOPHOSPHAMIDE
     Indication: LYMPHOMA
     Route: 042

REACTIONS (8)
  - Delirium [Recovered/Resolved]
  - Febrile neutropenia [Recovered/Resolved]
  - Agitation [Recovered/Resolved]
  - Cough [Recovered/Resolved]
  - SARS-CoV-2 test negative [Recovered/Resolved]
  - Aggression [Recovered/Resolved]
  - Genitourinary symptom [Recovered/Resolved]
  - Confusional state [Recovered/Resolved]
